FAERS Safety Report 13362453 (Version 1)
Quarter: 2017Q1

REPORT INFORMATION
  Report Type: Spontaneous
  Country: US (occurrence: US)
  Receive Date: 20170322
  Receipt Date: 20170322
  Transmission Date: 20170429
  Serious: Yes (Hospitalization)
  Sender: FDA-Public Use
  Company Number: None

PATIENT
  Age: 32 Year
  Sex: Female
  Weight: 135.17 kg

DRUGS (1)
  1. PARAGARD T 380A [Suspect]
     Active Substance: COPPER
     Dates: start: 20130726, end: 20170116

REACTIONS (3)
  - Device breakage [None]
  - Embedded device [None]
  - Complication associated with device [None]

NARRATIVE: CASE EVENT DATE: 20170116
